FAERS Safety Report 11844837 (Version 1)
Quarter: 2015Q4

REPORT INFORMATION
  Report Type: Spontaneous
  Country: US (occurrence: US)
  Receive Date: 20151217
  Receipt Date: 20151217
  Transmission Date: 20160305
  Serious: Yes (Death)
  Sender: FDA-Public Use
  Company Number: US-PAR PHARMACEUTICAL COMPANIES-2015SCPR014875

PATIENT
  Age: 68 Year
  Sex: Female

DRUGS (1)
  1. BUPROPION HCL XL TABLETS [Suspect]
     Active Substance: BUPROPION HYDROCHLORIDE
     Indication: PRODUCT USE ISSUE
     Dosage: UNK UNK, UNKNOWN
     Route: 048

REACTIONS (14)
  - Death [Fatal]
  - Myocardial strain [Fatal]
  - Pleural effusion [Fatal]
  - Bundle branch block left [Fatal]
  - Hypotension [Fatal]
  - Cardiac arrest [Fatal]
  - Hyperdynamic left ventricle [Fatal]
  - Pericardial effusion [Fatal]
  - Ascites [Fatal]
  - Overdose [Fatal]
  - Completed suicide [Fatal]
  - Pulmonary oedema [Fatal]
  - Depressed level of consciousness [Fatal]
  - Seizure [Fatal]

NARRATIVE: CASE EVENT DATE: 2014
